FAERS Safety Report 19533180 (Version 4)
Quarter: 2021Q4

REPORT INFORMATION
  Report Type: Report from Study
  Country: US (occurrence: US)
  Receive Date: 20210714
  Receipt Date: 20211230
  Transmission Date: 20220303
  Serious: Yes (Other)
  Sender: FDA-Public Use
  Company Number: NVSC2021US148865

PATIENT
  Sex: Male

DRUGS (3)
  1. ENTRESTO [Suspect]
     Active Substance: SACUBITRIL\VALSARTAN
     Indication: Product used for unknown indication
     Dosage: UNK UNK, Q12H
     Route: 048
     Dates: start: 20210330
  2. METFORMIN [Suspect]
     Active Substance: METFORMIN HYDROCHLORIDE
     Indication: Product used for unknown indication
     Dosage: UNK
     Route: 065
  3. INSULIN NOS [Concomitant]
     Active Substance: INSULIN NOS
     Indication: Product used for unknown indication
     Dosage: UNK (HAD BEEN ON INSULIN 6 YEARS NOW)
     Route: 065

REACTIONS (19)
  - Loss of consciousness [Unknown]
  - Renal impairment [Unknown]
  - Pituitary enlargement [Unknown]
  - Blood glucose decreased [Unknown]
  - Memory impairment [Unknown]
  - Mental disorder [Unknown]
  - Depression [Unknown]
  - Anxiety [Unknown]
  - Heart rate decreased [Not Recovered/Not Resolved]
  - Weight decreased [Unknown]
  - Blood cholesterol decreased [Unknown]
  - Blood potassium increased [Recovered/Resolved]
  - Blood calcium increased [Unknown]
  - Dizziness [Unknown]
  - Diarrhoea [Unknown]
  - Hepatic function abnormal [Unknown]
  - Ejection fraction decreased [Not Recovered/Not Resolved]
  - Hypotension [Not Recovered/Not Resolved]
  - Product dose omission issue [Unknown]
